FAERS Safety Report 18509055 (Version 1)
Quarter: 2020Q4

REPORT INFORMATION
  Report Type: Spontaneous
  Country: DE (occurrence: DE)
  Receive Date: 20201117
  Receipt Date: 20201117
  Transmission Date: 20210114
  Serious: Yes (Hospitalization, Other)
  Sender: FDA-Public Use
  Company Number: DE-AUROBINDO-AUR-APL-2020-055814

PATIENT
  Age: 69 Year
  Sex: Female

DRUGS (1)
  1. RISPERIDONE. [Suspect]
     Active Substance: RISPERIDONE
     Indication: DEPRESSION
     Dosage: 4 MILLIGRAM, ONCE A DAY
     Route: 065

REACTIONS (5)
  - Parkinsonism [Unknown]
  - Extrapyramidal disorder [Unknown]
  - Akathisia [Unknown]
  - Dyskinesia [Unknown]
  - Hypertonia [Unknown]
